FAERS Safety Report 16207970 (Version 3)
Quarter: 2020Q1

REPORT INFORMATION
  Report Type: Report from Study
  Country: GB (occurrence: GB)
  Receive Date: 20190417
  Receipt Date: 20200228
  Transmission Date: 20200409
  Serious: Yes (Other)
  Sender: FDA-Public Use
  Company Number: GB-JNJFOC-20190424426

PATIENT
  Sex: Male

DRUGS (1)
  1. STELARA [Suspect]
     Active Substance: USTEKINUMAB
     Indication: PSORIASIS
     Dosage: 90MG WEEK 0 LOADING DOSE?90MG WEEK 4 LOADING DOSE?90MG EVERY 12 WEEKS MAINTENANCE DOSE
     Route: 058

REACTIONS (5)
  - Fatigue [Unknown]
  - Lower respiratory tract infection [Recovered/Resolved]
  - Psoriasis [Unknown]
  - Toe operation [Unknown]
  - Diarrhoea [Unknown]

NARRATIVE: CASE EVENT DATE: 2019
